FAERS Safety Report 9519032 (Version 1)
Quarter: 2013Q1

REPORT INFORMATION
  Report Type: Spontaneous
  Country: US (occurrence: None)
  Receive Date: 20130305
  Receipt Date: 20130305
  Transmission Date: 20140127
  Serious: Yes (Other)
  Sender: FDA-Public Use
  Company Number: 163-21880-12010946

PATIENT
  Age: 72 Year
  Sex: Male
  Weight: 106.14 kg

DRUGS (6)
  1. REVLIMID (LENALIDOMIDE) (15 MILLIGRAM, CAPSULES) [Suspect]
     Indication: PLASMA CELL MYELOMA
     Dosage: 15 MG, 1 IN 1 D, PO
     Route: 048
     Dates: start: 20101130, end: 20120110
  2. AMLODIPINE (AMLODIPINE) (TABLETS) [Concomitant]
  3. ATENOLOL (ATENOLOL) (TABLETS) [Concomitant]
  4. FOLIC ACID (FOLIC ACID) (TABLETS) [Concomitant]
  5. LISINOPRIL (LISINOPRIL) (TABLETS) [Concomitant]
  6. BACTRIM (BACTRIM) (TABLETS) [Concomitant]

REACTIONS (1)
  - Thrombocytopenia [None]
